FAERS Safety Report 25542756 (Version 1)
Quarter: 2025Q3

REPORT INFORMATION
  Report Type: Spontaneous
  Country: US (occurrence: US)
  Receive Date: 20250711
  Receipt Date: 20250711
  Transmission Date: 20251021
  Serious: Yes (Other)
  Sender: ABBVIE
  Company Number: US-ABBVIE-6364410

PATIENT
  Sex: Female

DRUGS (1)
  1. LUPRON DEPOT [Suspect]
     Active Substance: LEUPROLIDE ACETATE
     Indication: Menstrual cycle management
     Route: 065

REACTIONS (6)
  - Cardiac arrest [Unknown]
  - Breast cancer female [Unknown]
  - Carotid artery dissection [Unknown]
  - Off label use [Unknown]
  - Heavy menstrual bleeding [Unknown]
  - Coronary artery dissection [Unknown]
